FAERS Safety Report 8773128 (Version 1)
Quarter: 2012Q4

REPORT INFORMATION
  Report Type: 
  Country: US (occurrence: US)
  Receive Date: 20120907
  Receipt Date: 20120907
  Transmission Date: 20130627
  Serious: Yes (Hospitalization, Other)
  Sender: FDA-Public Use
  Company Number: PHHY2012US075411

PATIENT
  Age: 69 Year
  Sex: Female

DRUGS (3)
  1. HEPARIN [Suspect]
     Indication: THROMBOSIS PROPHYLAXIS
     Route: 058
  2. ARGATROBAN [Concomitant]
  3. WARFARIN [Concomitant]

REACTIONS (9)
  - Myocardial infarction [Recovered/Resolved]
  - Coronary artery thrombosis [Unknown]
  - Syncope [Recovered/Resolved]
  - Sinus tachycardia [Recovered/Resolved]
  - Chest pain [Recovered/Resolved]
  - Dizziness [Recovered/Resolved]
  - Hyperhidrosis [Recovered/Resolved]
  - Atrioventricular block complete [Recovered/Resolved]
  - Heparin-induced thrombocytopenia [Recovered/Resolved]
